FAERS Safety Report 17202988 (Version 2)
Quarter: 2020Q1

REPORT INFORMATION
  Report Type: Spontaneous
  Country: US (occurrence: US)
  Receive Date: 20191226
  Receipt Date: 20200225
  Transmission Date: 20200409
  Serious: Yes (Life-Threatening, Hospitalization)
  Sender: FDA-Public Use
  Company Number: US-009507513-1912USA011119

PATIENT
  Age: 76 Year
  Sex: Male

DRUGS (7)
  1. DIFICID [Suspect]
     Active Substance: FIDAXOMICIN
     Indication: COLITIS
     Dosage: 200 MILLIGRAM, EVERY 12 HOURS
     Dates: start: 20191219, end: 20191219
  2. FLAGYL [Concomitant]
     Active Substance: METRONIDAZOLE\METRONIDAZOLE HYDROCHLORIDE
     Dosage: UNK
     Route: 042
  3. MERREM [Concomitant]
     Active Substance: MEROPENEM
     Dosage: UNK
  4. DIFICID [Suspect]
     Active Substance: FIDAXOMICIN
     Dosage: 200 MILLIGRAM, EVERY 12 HOURS
     Dates: start: 20191223
  5. VANCOMYCIN [Concomitant]
     Active Substance: VANCOMYCIN
     Dosage: UNK
     Route: 048
  6. PROTONIX [Concomitant]
     Active Substance: PANTOPRAZOLE SODIUM
     Dosage: UNK
     Route: 042
  7. PARENTERAL NUTRITION (UNSPECIFIED) [Concomitant]
     Active Substance: AMINO ACIDS\DEXTROSE\ELECTROLYTES NOS
     Dosage: UNK

REACTIONS (3)
  - Ileostomy [Unknown]
  - Adverse event [Unknown]
  - Product use in unapproved indication [Unknown]

NARRATIVE: CASE EVENT DATE: 201912
